FAERS Safety Report 4442376-5 (Version None)
Quarter: 2004Q3

REPORT INFORMATION
  Report Type: 
  Country: None (occurrence: None)
  Receive Date: 20040903
  Receipt Date: 20040720
  Transmission Date: 20050211
  Serious: Yes (Other)
  Sender: FDA-Public Use
  Company Number: 2004UW15063

PATIENT
  Age: 68 Year
  Sex: Female
  Weight: 65.7716 kg

DRUGS (11)
  1. CRESTOR [Suspect]
     Indication: BLOOD CHOLESTEROL INCREASED
     Dosage: 20 MG HS PO
     Route: 048
     Dates: start: 20040101
  2. CRESTOR [Suspect]
     Indication: BLOOD TRIGLYCERIDES
     Dosage: 20 MG HS PO
     Route: 048
     Dates: start: 20040101
  3. NEXIUM [Concomitant]
  4. ZANTAC [Concomitant]
  5. ATIVAN [Concomitant]
  6. ASPIRIN [Concomitant]
  7. ALEVE [Concomitant]
  8. VITAMIN B-12 [Concomitant]
  9. CALCIUIM [Concomitant]
  10. FOLIC ACID [Concomitant]
  11. METAMUCIL ^PROCTER + GAMBLE^ [Concomitant]

REACTIONS (4)
  - ASTHENIA [None]
  - FATIGUE [None]
  - GASTROOESOPHAGEAL REFLUX DISEASE [None]
  - NAUSEA [None]
